FAERS Safety Report 6044020-2 (Version None)
Quarter: 2009Q1

REPORT INFORMATION
  Report Type: 
  Country: None (occurrence: None)
  Receive Date: 20090114
  Receipt Date: 20090114
  Transmission Date: 20090719
  Serious: No
  Sender: FDA-Public Use
  Company Number: None

PATIENT
  Age: 65 Year
  Sex: Female
  Weight: 64.8644 kg

DRUGS (2)
  1. PULMICORT [Suspect]
     Dosage: ONE LONG BREATH IN 2X A DAY PO
     Route: 048
     Dates: start: 20081227, end: 20081230
  2. BUDESONIDE INHALATION POWDER [Concomitant]

REACTIONS (3)
  - DYSGEUSIA [None]
  - OROPHARYNGEAL PAIN [None]
  - STOMATITIS [None]
